FAERS Safety Report 13877169 (Version 1)
Quarter: 2017Q3

REPORT INFORMATION
  Report Type: Spontaneous
  Country: ES (occurrence: ES)
  Receive Date: 20170817
  Receipt Date: 20170817
  Transmission Date: 20171127
  Serious: Yes (Other)
  Sender: FDA-Public Use
  Company Number: ES-JNJFOC-20160515427

PATIENT
  Age: 59 Year
  Sex: Male

DRUGS (1)
  1. XEPLION [Suspect]
     Active Substance: PALIPERIDONE PALMITATE
     Indication: SCHIZOPHRENIA
     Route: 030
     Dates: start: 20140702, end: 20160404

REACTIONS (3)
  - Injection site necrosis [Unknown]
  - Nodular fasciitis [Recovered/Resolved]
  - Injection site inflammation [Recovering/Resolving]

NARRATIVE: CASE EVENT DATE: 201604
